FAERS Safety Report 9655926 (Version 2)
Quarter: 2015Q4

REPORT INFORMATION
  Report Type: Spontaneous
  Country: US (occurrence: US)
  Receive Date: 20131030
  Receipt Date: 20151215
  Transmission Date: 20160305
  Serious: No
  Sender: FDA-Public Use
  Company Number: US-009507513-1310USA009736

PATIENT
  Age: 54 Year
  Sex: Female

DRUGS (6)
  1. COPEGUS [Suspect]
     Active Substance: RIBAVIRIN
     Indication: HEPATITIS C
     Dosage: 4 IN AM, 4 IN PM (400 MG, 1 IN 1D)
     Route: 048
     Dates: start: 2013
  2. GABAPENTIN. [Concomitant]
     Active Substance: GABAPENTIN
     Indication: MUSCLE SPASMS
  3. COPEGUS [Suspect]
     Active Substance: RIBAVIRIN
     Dosage: 600 MG Q AM AND 400 MG Q PM (1000 MG, 1 IN 1D)
     Route: 048
  4. VICTRELIS [Suspect]
     Active Substance: BOCEPREVIR
     Indication: HEPATITIS C
     Route: 065
  5. PEGASYS [Suspect]
     Active Substance: PEGINTERFERON ALFA-2A
     Indication: PRODUCT USED FOR UNKNOWN INDICATION
     Dosage: PROCLICK (180 MICROGRAM, 1 IN 1 WK)
     Route: 058
     Dates: start: 20130403
  6. MOTRIN [Concomitant]
     Active Substance: IBUPROFEN

REACTIONS (11)
  - Skin discolouration [Not Recovered/Not Resolved]
  - Pyrexia [Unknown]
  - Product quality issue [Unknown]
  - Injection site erythema [Unknown]
  - Rash erythematous [Not Recovered/Not Resolved]
  - Device malfunction [Unknown]
  - Contusion [Unknown]
  - Pain in extremity [Not Recovered/Not Resolved]
  - Drug dose omission [Unknown]
  - Rash [Unknown]
  - Liquid product physical issue [Unknown]

NARRATIVE: CASE EVENT DATE: 201310
